FAERS Safety Report 7283375-8 (Version None)
Quarter: 2011Q1

REPORT INFORMATION
  Report Type: 
  Country: None (occurrence: None)
  Receive Date: 20110209
  Receipt Date: 20100712
  Transmission Date: 20110831
  Serious: No
  Sender: FDA-Public Use
  Company Number: A0869725A

PATIENT
  Sex: Male

DRUGS (2)
  1. XANAX [Concomitant]
  2. PAROXETINE HCL [Suspect]
     Indication: DEPRESSION
     Dosage: 30MG PER DAY
     Route: 048
     Dates: start: 20080101

REACTIONS (2)
  - DYSPHEMIA [None]
  - DRUG INEFFECTIVE [None]
